FAERS Safety Report 7967128-0 (Version None)
Quarter: 2011Q4

REPORT INFORMATION
  Report Type: 
  Country: None (occurrence: None)
  Receive Date: 20111208
  Receipt Date: 20111208
  Transmission Date: 20120403
  Serious: No
  Sender: FDA-Public Use
  Company Number: None

PATIENT
  Age: 25 Year
  Sex: Female

DRUGS (1)
  1. PREDNISONE [Suspect]

REACTIONS (5)
  - APHASIA [None]
  - WEIGHT INCREASED [None]
  - ABASIA [None]
  - INCREASED APPETITE [None]
  - AMNESIA [None]
